FAERS Safety Report 4437043-8 (Version None)
Quarter: 2004Q3

REPORT INFORMATION
  Report Type: 
  Country: None (occurrence: None)
  Receive Date: 20040830
  Receipt Date: 20040723
  Transmission Date: 20050211
  Serious: Yes (Life-Threatening, Hospitalization, Disabling, Other)
  Sender: FDA-Public Use
  Company Number: US-GLAXOSMITHKLINE-A0519532A

PATIENT
  Age: 55 Year
  Sex: Male

DRUGS (8)
  1. LAMICTAL [Suspect]
     Indication: BIPOLAR DISORDER
     Dosage: 25MG FOUR TIMES PER DAY
     Route: 048
     Dates: start: 20040601, end: 20040701
  2. LEXAPRO [Concomitant]
     Indication: BIPOLAR DISORDER
     Dosage: 20MG PER DAY
     Dates: start: 20030101
  3. TRAZODONE [Concomitant]
     Indication: SLEEP DISORDER
     Dosage: 150MG PER DAY
  4. ALTACE [Concomitant]
     Dosage: 5MG PER DAY
     Dates: start: 20040101
  5. TOPROL-XL [Concomitant]
     Dosage: 25MG PER DAY
     Dates: start: 20040101
  6. PLAVIX [Concomitant]
     Dosage: 25MG PER DAY
     Dates: start: 20040101
  7. ZOCOR [Concomitant]
     Dosage: 40MG PER DAY
     Dates: start: 20040101
  8. ALLOPURINOL [Concomitant]
     Dosage: 300MG PER DAY

REACTIONS (4)
  - ACUTE MYELOID LEUKAEMIA [None]
  - PANCYTOPENIA [None]
  - RED BLOOD CELL COUNT DECREASED [None]
  - WHITE BLOOD CELL COUNT DECREASED [None]
